FAERS Safety Report 4366112-6 (Version None)
Quarter: 2004Q2

REPORT INFORMATION
  Report Type: 
  Country: None (occurrence: None)
  Receive Date: 20040527
  Receipt Date: 20040519
  Transmission Date: 20050107
  Serious: Yes (Other)
  Sender: FDA-Public Use
  Company Number: PHNU2004DE01917

PATIENT
  Age: 63 Year
  Sex: Male

DRUGS (5)
  1. LAMISIL [Suspect]
     Indication: NAIL TINEA
     Dosage: 250 MG, ONCE/SINGLE
     Route: 048
     Dates: start: 20040518, end: 20040518
  2. LUPRON [Concomitant]
     Indication: PROSTATE CANCER
  3. CASODEX [Concomitant]
     Indication: PROSTATE CANCER
  4. PROSCAR [Concomitant]
     Indication: PROSTATE CANCER
  5. DYTIDE H [Concomitant]

REACTIONS (5)
  - BLOOD PRESSURE DECREASED [None]
  - BRADYCARDIA [None]
  - BUNDLE BRANCH BLOCK LEFT [None]
  - HEART RATE DECREASED [None]
  - SINUS ARRHYTHMIA [None]
